FAERS Safety Report 5133548-5 (Version None)
Quarter: 2006Q4

REPORT INFORMATION
  Report Type: 
  Country: None (occurrence: None)
  Receive Date: 20061018
  Receipt Date: 20061009
  Transmission Date: 20070319
  Serious: Yes (Other)
  Sender: FDA-Public Use
  Company Number: 230481

PATIENT
  Age: 37 Year
  Sex: Female

DRUGS (17)
  1. XOLAIR [Suspect]
     Indication: DRUG USE FOR UNKNOWN INDICATION
     Dosage: 225 MG, Q2W, SUBCUTANEOUS
     Route: 058
     Dates: start: 20060101
  2. PAIN MEDICATION (ANALGESIC  NOS) [Concomitant]
  3. ADVAIR DISKUS 100/50 [Concomitant]
  4. VOLMAX                 (ALBUTEROL/ALBUTEROL SULFATE) [Concomitant]
  5. ALBUTEROL       (ALBUTEROL/ALBUTEROL SULFATE) [Concomitant]
  6. ATROVENT [Concomitant]
  7. FLONASE [Concomitant]
  8. LASIX [Concomitant]
  9. K-DUR 10 [Concomitant]
  10. XANAX [Concomitant]
  11. NYSTATIN ORAL SOLUTION  (NYSTATIN) [Concomitant]
  12. TYLENOL W/ CODEINE NO. 3 [Concomitant]
  13. ASTELIN [Concomitant]
  14. PREDNISONE TAB [Concomitant]
  15. PHENERGAN                (PROMETHAZINE HYDROCHLORIDE) [Concomitant]
  16. TERAZOL CREAM         (TERCONAZOLE) [Concomitant]
  17. KEFLEX [Concomitant]

REACTIONS (4)
  - AMNESIA [None]
  - COORDINATION ABNORMAL [None]
  - FIBROMYALGIA [None]
  - SPEECH DISORDER [None]
